FAERS Safety Report 23522886 (Version 1)
Quarter: 2024Q1

REPORT INFORMATION
  Report Type: 
  Country: None (occurrence: None)
  Receive Date: 20240214
  Receipt Date: 20240214
  Transmission Date: 20240410
  Serious: No
  Sender: FDA-Public Use
  Company Number: DE-ROCHE-3504543

PATIENT
  Weight: 82 kg

DRUGS (26)
  1. POLATUZUMAB VEDOTIN [Suspect]
     Active Substance: POLATUZUMAB VEDOTIN
     Dates: start: 20240122
  2. RITUXIMAB [Suspect]
     Active Substance: RITUXIMAB
     Dates: start: 20240122
  3. CYCLOPHOSPHAMIDE [Suspect]
     Active Substance: CYCLOPHOSPHAMIDE
     Dates: start: 20240122
  4. DOXORUBICIN [Suspect]
     Active Substance: DOXORUBICIN
     Dates: start: 20240122
  5. PREDNISONE [Suspect]
     Active Substance: PREDNISONE
     Dates: start: 20240122
  6. ATORVASTATIN [Concomitant]
     Active Substance: ATORVASTATIN
     Dates: start: 20240122
  7. PANTOPRAZOLE [Concomitant]
     Active Substance: PANTOPRAZOLE
     Dates: start: 20240122
  8. LAXOFALK [Concomitant]
     Dates: start: 20240123, end: 20240123
  9. COTRIM [Concomitant]
     Active Substance: SULFAMETHOXAZOLE\TRIMETHOPRIM
     Dates: start: 20240122
  10. ACYCLOVIR [Concomitant]
     Active Substance: ACYCLOVIR
     Dates: start: 20240122
  11. METFORMIN [Concomitant]
     Active Substance: METFORMIN HYDROCHLORIDE
  12. SITAGLIPTIN [Concomitant]
     Active Substance: SITAGLIPTIN
  13. ENOXAPARIN SODIUM [Concomitant]
     Active Substance: ENOXAPARIN SODIUM
  14. PREDNISOLONE [Concomitant]
     Active Substance: PREDNISOLONE
     Dates: start: 20240122, end: 20240122
  15. ACETAMINOPHEN [Concomitant]
     Active Substance: ACETAMINOPHEN
     Dates: start: 20240122, end: 20240122
  16. FAMOTIDINE [Concomitant]
     Active Substance: FAMOTIDINE
     Dates: start: 20240122, end: 20240122
  17. MESNA [Concomitant]
     Active Substance: MESNA
     Dates: start: 20240122, end: 20240122
  18. CALCIUM CHLORIDE\MAGNESIUM CHLORIDE\POTASSIUM CHLORIDE\SODIUM ACETATE\ [Concomitant]
     Active Substance: CALCIUM CHLORIDE\MAGNESIUM CHLORIDE\POTASSIUM CHLORIDE\SODIUM ACETATE\SODIUM CHLORIDE
     Dates: start: 20240123, end: 20240125
  19. URALYT [Concomitant]
     Dates: start: 20240123, end: 20240124
  20. FASTURTEC [Concomitant]
     Active Substance: RASBURICASE
     Dates: start: 20240123, end: 20240123
  21. LASIX [Concomitant]
     Active Substance: FUROSEMIDE
     Dates: start: 20240124, end: 20240124
  22. LASIX [Concomitant]
     Active Substance: FUROSEMIDE
     Dates: start: 20240125, end: 20240125
  23. ACTRAPID [Concomitant]
     Active Substance: INSULIN HUMAN
     Dates: start: 20240125
  24. LANTUS [Concomitant]
     Active Substance: INSULIN GLARGINE
     Dates: start: 20240125
  25. KALINOR [Concomitant]
     Dates: start: 20240125, end: 20240125
  26. AMPHOTERICIN B [Concomitant]
     Active Substance: AMPHOTERICIN B
     Dates: start: 20240126

REACTIONS (1)
  - Mucosal inflammation [None]

NARRATIVE: CASE EVENT DATE: 20240202
